FAERS Safety Report 15229815 (Version 1)
Quarter: 2018Q3

REPORT INFORMATION
  Report Type: Spontaneous
  Country: US (occurrence: US)
  Receive Date: 20180802
  Receipt Date: 20180802
  Transmission Date: 20181010
  Serious: No
  Sender: FDA-Public Use
  Company Number: US-JNJFOC-20180707993

PATIENT
  Sex: Female
  Weight: 106.6 kg

DRUGS (3)
  1. CHILDRENS MOTRIN [Concomitant]
     Active Substance: IBUPROFEN
     Indication: NEURALGIA
     Route: 065
  2. MOTRIN IB [Concomitant]
     Active Substance: IBUPROFEN
     Indication: NEURALGIA
     Route: 065
  3. TYLENOL EXTRA STRENGTH [Suspect]
     Active Substance: ACETAMINOPHEN
     Indication: NEURALGIA
     Dosage: PATIENT STATES SHE TOOK 1 CAPLET, THEN 12 HOURS LATER SHE TOOK A HALF CAPLET
     Route: 048
     Dates: start: 2018, end: 2018

REACTIONS (4)
  - Nausea [Recovered/Resolved]
  - Product use in unapproved indication [Unknown]
  - Expired product administered [Unknown]
  - Wrong technique in product usage process [Unknown]

NARRATIVE: CASE EVENT DATE: 2018
